FAERS Safety Report 24021979 (Version 1)
Quarter: 2024Q2

REPORT INFORMATION
  Report Type: Report from Study
  Country: FR (occurrence: FR)
  Receive Date: 20240627
  Receipt Date: 20240627
  Transmission Date: 20240716
  Serious: Yes (Other)
  Sender: FDA-Public Use
  Company Number: FR-JNJFOC-20230421561

PATIENT
  Age: 17 Year
  Sex: Female

DRUGS (1)
  1. REMICADE [Suspect]
     Active Substance: INFLIXIMAB
     Indication: Colitis ulcerative
     Route: 041
     Dates: start: 20130611, end: 20161018

REACTIONS (2)
  - Thrombocytopenia [Recovered/Resolved]
  - Faecal calprotectin [Not Recovered/Not Resolved]

NARRATIVE: CASE EVENT DATE: 20170210
